FAERS Safety Report 15195823 (Version 2)
Quarter: 2018Q3

REPORT INFORMATION
  Report Type: Spontaneous
  Country: US (occurrence: US)
  Receive Date: 20180725
  Receipt Date: 20180820
  Transmission Date: 20181010
  Serious: Yes (Other)
  Sender: FDA-Public Use
  Company Number: US-PFIZER INC-2018297849

PATIENT
  Age: 62 Year
  Sex: Female

DRUGS (4)
  1. XELJANZ XR [Suspect]
     Active Substance: TOFACITINIB CITRATE
     Indication: RHEUMATOID ARTHRITIS
     Dosage: 11 MG, DAILY
  2. XELJANZ [Suspect]
     Active Substance: TOFACITINIB CITRATE
     Indication: RHEUMATOID ARTHRITIS
     Dosage: 10 MG, DAILY
     Route: 048
  3. METHOTREXATE. [Concomitant]
     Active Substance: METHOTREXATE
     Indication: RHEUMATOID ARTHRITIS
     Dosage: 10 MG, WEEKLY (4 TABS WEEKY)
     Dates: start: 20160321, end: 20180301
  4. PREDNISONE. [Concomitant]
     Active Substance: PREDNISONE
     Indication: SYNOVITIS
     Dosage: 2.5 MG, 1X/DAY (QD)
     Dates: start: 20161019, end: 20171222

REACTIONS (6)
  - Headache [Not Recovered/Not Resolved]
  - Dyschondrosteosis [Recovered/Resolved]
  - Diarrhoea [Recovered/Resolved]
  - Diarrhoea [Not Recovered/Not Resolved]
  - Epigastric discomfort [Unknown]
  - Pancreatitis [Unknown]

NARRATIVE: CASE EVENT DATE: 20171222
